FAERS Safety Report 16781214 (Version 1)
Quarter: 2019Q3

REPORT INFORMATION
  Report Type: Report from Study
  Country: CA (occurrence: CA)
  Receive Date: 20190906
  Receipt Date: 20190906
  Transmission Date: 20191005
  Serious: Yes (Other)
  Sender: FDA-Public Use
  Company Number: PHHY2017CA111565

PATIENT
  Sex: Female

DRUGS (7)
  1. COSENTYX [Suspect]
     Active Substance: SECUKINUMAB
     Dosage: 300 MG, QMO
     Route: 058
     Dates: start: 20170714
  2. TYLENOL [Concomitant]
     Active Substance: ACETAMINOPHEN
     Indication: PRODUCT USED FOR UNKNOWN INDICATION
     Dosage: UNK
     Route: 065
  3. COSENTYX [Suspect]
     Active Substance: SECUKINUMAB
     Dosage: 300 MG, QMO
     Route: 058
     Dates: start: 2017
  4. COSENTYX [Suspect]
     Active Substance: SECUKINUMAB
     Indication: PSORIATIC ARTHROPATHY
     Dosage: 300 MG, QW
     Route: 058
     Dates: start: 20170616, end: 20170707
  5. CORTISONE [Concomitant]
     Active Substance: CORTISONE
     Indication: PRODUCT USED FOR UNKNOWN INDICATION
     Route: 065
  6. NAPROXEN. [Concomitant]
     Active Substance: NAPROXEN
     Indication: PRODUCT USED FOR UNKNOWN INDICATION
     Dosage: UNK
     Route: 065
  7. COSENTYX [Suspect]
     Active Substance: SECUKINUMAB
     Dosage: 300 MG, QMO
     Route: 058
     Dates: start: 20180514

REACTIONS (19)
  - Upper limb fracture [Unknown]
  - Localised infection [Recovered/Resolved]
  - Aphonia [Unknown]
  - Insomnia [Unknown]
  - Nasal congestion [Unknown]
  - Fall [Unknown]
  - Sinusitis [Recovering/Resolving]
  - Pharyngitis streptococcal [Unknown]
  - Diarrhoea [Unknown]
  - Syncope [Unknown]
  - Stress [Unknown]
  - Gastrooesophageal reflux disease [Unknown]
  - Frequent bowel movements [Unknown]
  - Asthenia [Unknown]
  - Dizziness [Unknown]
  - Viral infection [Unknown]
  - Sinus congestion [Unknown]
  - Malaise [Unknown]
  - Head discomfort [Unknown]

NARRATIVE: CASE EVENT DATE: 2017
